FAERS Safety Report 4640072-2 (Version None)
Quarter: 2005Q2

REPORT INFORMATION
  Report Type: 
  Country: None (occurrence: None)
  Receive Date: 20050418
  Receipt Date: 20050401
  Transmission Date: 20051028
  Serious: Yes (Other)
  Sender: FDA-Public Use
  Company Number: 2005BI003286

PATIENT
  Age: 41 Year
  Sex: Female

DRUGS (5)
  1. NATALIZUMAB [Suspect]
     Indication: MULTIPLE SCLEROSIS
     Dosage: 300 MG; QM; IV
     Route: 042
     Dates: start: 20050129, end: 20050201
  2. ZOLOFT [Concomitant]
  3. XANAX [Concomitant]
  4. VICOPROFEN [Concomitant]
  5. DURAGESIC [Concomitant]

REACTIONS (3)
  - COMPLEX PARTIAL SEIZURES [None]
  - ELECTROENCEPHALOGRAM ABNORMAL [None]
  - NUCLEAR MAGNETIC RESONANCE IMAGING BRAIN ABNORMAL [None]
